FAERS Safety Report 6358006-1 (Version None)
Quarter: 2009Q3

REPORT INFORMATION
  Report Type: 
  Country: None (occurrence: None)
  Receive Date: 20090911
  Receipt Date: 20090908
  Transmission Date: 20100115
  Serious: Yes (Hospitalization)
  Sender: FDA-Public Use
  Company Number: FXKR2009DE10044

PATIENT
  Age: 83 Year
  Sex: Female
  Weight: 58 kg

DRUGS (7)
  1. FUROSEMIDE [Suspect]
  2. ACETYLSALICYLIC ACID SRT [Concomitant]
  3. ALLOPURINOL [Concomitant]
  4. BISOPROLOL FUMARATE [Concomitant]
  5. FOSAVANCE (ALENDRONATE SODIUM, COLECALCIFEROL) [Concomitant]
  6. NEORECORMON ^ROCHE^ (EPOETIN BETA) [Concomitant]
  7. SIMVASTATIN [Concomitant]

REACTIONS (1)
  - RENAL FAILURE ACUTE [None]
